FAERS Safety Report 18654200 (Version 1)
Quarter: 2020Q4

REPORT INFORMATION
  Report Type: Spontaneous
  Country: US (occurrence: US)
  Receive Date: 20201223
  Receipt Date: 20201223
  Transmission Date: 20210114
  Serious: No
  Sender: FDA-Public Use
  Company Number: US-TAKEDA-2020TUS059346

PATIENT
  Sex: Male
  Weight: 84 kg

DRUGS (2)
  1. PANTOPRAZOLE [Suspect]
     Active Substance: PANTOPRAZOLE
     Indication: PRODUCT USED FOR UNKNOWN INDICATION
     Dosage: UNK
     Route: 065
  2. DEXILANT [Suspect]
     Active Substance: DEXLANSOPRAZOLE
     Indication: DYSPEPSIA
     Dosage: 60 MILLIGRAM, QD
     Route: 065

REACTIONS (6)
  - Therapeutic product effect decreased [Unknown]
  - Extra dose administered [Unknown]
  - Incorrect product administration duration [Unknown]
  - Therapy interrupted [Unknown]
  - Productive cough [Unknown]
  - Dyspepsia [Unknown]
